FAERS Safety Report 5056759-6 (Version None)
Quarter: 2006Q2

REPORT INFORMATION
  Report Type: 
  Country: None (occurrence: None)
  Receive Date: 20060619
  Receipt Date: 20060209
  Transmission Date: 20061013
  Serious: Yes (Other)
  Sender: FDA-Public Use
  Company Number: US-2006-001926

PATIENT
  Age: 65 Year
  Sex: Female
  Weight: 126.5 kg

DRUGS (8)
  1. FLUDARA [Suspect]
     Indication: CHRONIC LYMPHOCYTIC LEUKAEMIA
     Dosage: 50MG.D1-D3 EACH CYCLE, INTRAVENOUS
     Route: 042
     Dates: start: 20050517, end: 20050810
  2. CYCLOPHOSPHAMIDE [Concomitant]
  3. RITUXAN [Concomitant]
  4. CALCIUM (CALCIUM) [Concomitant]
  5. ATENOLOL [Concomitant]
  6. MULTIVITAMINS (RETINOL, PANTHENOL) [Concomitant]
  7. BACTRIM DS [Concomitant]
  8. CARAFATE [Concomitant]

REACTIONS (1)
  - THROMBOCYTOPENIA [None]
